FAERS Safety Report 21272554 (Version 2)
Quarter: 2022Q3

REPORT INFORMATION
  Report Type: Spontaneous
  Country: US (occurrence: US)
  Receive Date: 20220830
  Receipt Date: 20220913
  Transmission Date: 20221027
  Serious: Yes (Hospitalization)
  Sender: FDA-Public Use
  Company Number: US-CTI BIOPHARMA-2022US02991

PATIENT
  Age: 70 Year
  Sex: Female
  Weight: 51.093 kg

DRUGS (1)
  1. VONJO [Suspect]
     Active Substance: PACRITINIB
     Indication: Myelofibrosis
     Dosage: 200 MILLIGRAM, BID
     Route: 048
     Dates: start: 20220610

REACTIONS (2)
  - Pulmonary oedema [Unknown]
  - Illness [Unknown]

NARRATIVE: CASE EVENT DATE: 20220801
